FAERS Safety Report 6222667-8 (Version None)
Quarter: 2009Q2

REPORT INFORMATION
  Report Type: 
  Country: None (occurrence: None)
  Receive Date: 20090611
  Receipt Date: 20090529
  Transmission Date: 20091009
  Serious: Yes (Other)
  Sender: FDA-Public Use
  Company Number: US-ELI_LILLY_AND_COMPANY-US200906000219

PATIENT
  Sex: Female

DRUGS (3)
  1. ZYPREXA [Suspect]
     Indication: SCHIZOPHRENIA, PARANOID TYPE
     Dosage: 10 MG, UNK
  2. TRINSICON [Concomitant]
     Indication: DYSPEPSIA
  3. PROLIXIN [Concomitant]

REACTIONS (3)
  - OBESITY [None]
  - THINKING ABNORMAL [None]
  - WEIGHT INCREASED [None]
